FAERS Safety Report 12354540 (Version 5)
Quarter: 2016Q3

REPORT INFORMATION
  Report Type: Report from Study
  Country: IT (occurrence: IT)
  Receive Date: 20160511
  Receipt Date: 20160718
  Transmission Date: 20161109
  Serious: Yes (Death, Hospitalization)
  Sender: FDA-Public Use
  Company Number: PHHO2016IT006635

PATIENT
  Age: 82 Year
  Sex: Female
  Weight: 59 kg

DRUGS (13)
  1. SPIRIVA [Concomitant]
     Active Substance: TIOTROPIUM BROMIDE MONOHYDRATE
     Indication: DYSPNOEA
     Dosage: 1 PUFF, UNK
     Route: 065
     Dates: start: 20160323, end: 20160326
  2. URBASON [Concomitant]
     Active Substance: METHYLPREDNISOLONE
     Indication: DYSPNOEA
     Dosage: 8 MG, OS
     Route: 065
     Dates: start: 201503
  3. CARDIOASPIRINA [Concomitant]
     Active Substance: ASPIRIN
     Indication: TRANSIENT ISCHAEMIC ATTACK
     Dosage: 100 MG, OS
     Route: 065
     Dates: start: 201403
  4. NORMOSOL-R [Concomitant]
     Active Substance: MAGNESIUM CHLORIDE\POTASSIUM CHLORIDE\SODIUM ACETATE ANHYDROUS\SODIUM CHLORIDE\SODIUM GLUCONATE
     Indication: DEHYDRATION
     Dosage: 100 ML, BID
     Route: 042
     Dates: start: 20160502, end: 20160502
  5. ALPRAZOLAM. [Concomitant]
     Active Substance: ALPRAZOLAM
     Indication: ANXIETY
     Dosage: 2 MG, OS
     Route: 065
     Dates: start: 201406
  6. LASIX [Concomitant]
     Active Substance: FUROSEMIDE
     Indication: PLEURAL EFFUSION
     Dosage: 250 MG, OS
     Route: 065
     Dates: start: 201503, end: 20160323
  7. SONGAR [Concomitant]
     Active Substance: TRIAZOLAM
     Indication: INSOMNIA
     Dosage: 0.25 MG, OS
     Route: 065
     Dates: start: 201406
  8. ENTACT [Concomitant]
     Active Substance: ESCITALOPRAM OXALATE
     Indication: DEPRESSION
     Dosage: 10 GTT, OS
     Route: 065
     Dates: start: 20140301
  9. CARDURA [Concomitant]
     Active Substance: DOXAZOSIN MESYLATE
     Indication: HYPERTENSION
     Dosage: 4 MG, OS
     Route: 065
     Dates: start: 201403
  10. ANSIMAR [Concomitant]
     Active Substance: DOXOFYLLINE
     Indication: DYSPNOEA
     Dosage: 400 MG, UNK
     Route: 065
     Dates: start: 20160323, end: 20160326
  11. LDK378 [Suspect]
     Active Substance: CERITINIB
     Indication: NON-SMALL CELL LUNG CANCER
     Dosage: 450 MG, QD
     Route: 048
     Dates: start: 20160414, end: 20160430
  12. VITREOCLAR [Concomitant]
     Indication: GLAUCOMA
     Dosage: 26 UG, OS
     Route: 065
     Dates: start: 201403
  13. BLOPRESS [Concomitant]
     Active Substance: CANDESARTAN CILEXETIL
     Indication: HYPERTENSION
     Dosage: 16 MG, OS
     Route: 065
     Dates: start: 1980

REACTIONS (2)
  - Intestinal perforation [Fatal]
  - Hyperglycaemia [Recovered/Resolved]

NARRATIVE: CASE EVENT DATE: 20160430
